FAERS Safety Report 4596958-0 (Version None)
Quarter: 2005Q1

REPORT INFORMATION
  Report Type: 
  Country: None (occurrence: None)
  Receive Date: 20050302
  Receipt Date: 20050204
  Transmission Date: 20050727
  Serious: Yes (Hospitalization, Other)
  Sender: FDA-Public Use
  Company Number: JP-ABBOTT-05P-087-0289834-00

PATIENT
  Age: 88 Year
  Sex: Female

DRUGS (2)
  1. EURODIN [Suspect]
     Indication: SLEEP DISORDER
     Route: 048
     Dates: start: 20050130, end: 20050130
  2. EURODIN [Suspect]
     Route: 048
     Dates: end: 20050129

REACTIONS (5)
  - CEREBRAL HAEMORRHAGE [None]
  - DIFFICULTY IN WALKING [None]
  - FALL [None]
  - HYPOTONIA [None]
  - OVERDOSE [None]
